FAERS Safety Report 11545006 (Version 2)
Quarter: 2015Q4

REPORT INFORMATION
  Report Type: Spontaneous
  Country: RU (occurrence: RU)
  Receive Date: 20150924
  Receipt Date: 20151020
  Transmission Date: 20160304
  Serious: Yes (Hospitalization, Other)
  Sender: FDA-Public Use
  Company Number: RU-GLAXOSMITHKLINE-B1006897A

PATIENT
  Sex: Male

DRUGS (3)
  1. STOCRIN [Suspect]
     Active Substance: EFAVIRENZ
     Indication: HIV INFECTION
     Dates: start: 2014
  2. EPIVIR [Suspect]
     Active Substance: LAMIVUDINE
     Indication: HIV INFECTION
     Dates: start: 2014
  3. ZIAGEN [Suspect]
     Active Substance: ABACAVIR SULFATE
     Indication: HIV INFECTION
     Dates: start: 2014

REACTIONS (9)
  - Delirium [Unknown]
  - Pyrexia [Unknown]
  - Antisocial behaviour [Unknown]
  - Abdominal pain upper [Unknown]
  - Delusion [Unknown]
  - Lymphadenopathy [Unknown]
  - Headache [Unknown]
  - Meningitis staphylococcal [Unknown]
  - Tuberculosis [Unknown]

NARRATIVE: CASE EVENT DATE: 2014
